FAERS Safety Report 9364550 (Version 1)
Quarter: 2013Q2

REPORT INFORMATION
  Report Type: Report from Study
  Country: AU (occurrence: AU)
  Receive Date: 20130624
  Receipt Date: 20130624
  Transmission Date: 20140414
  Serious: Yes (Hospitalization)
  Sender: FDA-Public Use
  Company Number: PHHO2012AU011659

PATIENT
  Age: 62 Year
  Sex: Male
  Weight: 75 kg

DRUGS (3)
  1. AMN107 [Suspect]
     Indication: CHRONIC MYELOID LEUKAEMIA
     Dosage: 800 MG, QD
     Route: 048
     Dates: start: 200909, end: 20120805
  2. AMN107 [Suspect]
     Dosage: 400 MG DAILY
     Route: 048
     Dates: start: 20120806, end: 20120812
  3. AMN107 [Suspect]
     Dosage: 800 MG, QD
     Route: 048
     Dates: start: 20120813, end: 20130604

REACTIONS (2)
  - Peripheral vascular disorder [Recovering/Resolving]
  - Anal fissure [Not Recovered/Not Resolved]
